FAERS Safety Report 14358343 (Version 1)
Quarter: 2018Q1

REPORT INFORMATION
  Report Type: Spontaneous
  Country: US (occurrence: US)
  Receive Date: 20180105
  Receipt Date: 20180105
  Transmission Date: 20180509
  Serious: No
  Sender: FDA-Public Use
  Company Number: US-SA-2017SA205180

PATIENT
  Sex: Female

DRUGS (21)
  1. IBANDRONATE SODIUM. [Concomitant]
     Active Substance: IBANDRONATE SODIUM
     Dosage: STRENGTH: 150 MG
     Route: 065
  2. LEVOCETRIZINE [Concomitant]
     Active Substance: LEVOCETIRIZINE
     Dosage: STRENGTH: 5 MG
     Route: 065
  3. AMITRIPTYLIN [Concomitant]
     Active Substance: AMITRIPTYLINE
     Dosage: FREQUENCY: 50 MG
     Route: 065
  4. BACLOFEN. [Concomitant]
     Active Substance: BACLOFEN
     Dosage: STRENGTH^ 20 MG
     Route: 065
  5. DOXEPIN HYDROCHLORIDE. [Concomitant]
     Active Substance: DOXEPIN HYDROCHLORIDE
     Dosage: STRENGTH; 25 MG
     Route: 065
  6. FUROSEMIDE. [Concomitant]
     Active Substance: FUROSEMIDE
     Dosage: STRENGTH: 40 MG
     Route: 065
  7. ONDANSETRON [Concomitant]
     Active Substance: ONDANSETRON
     Dosage: STRENGTH: 4MG
     Route: 065
  8. PRAMIPEXOLE. [Concomitant]
     Active Substance: PRAMIPEXOLE
     Dosage: STRENHGTH: 0.5 MG
     Route: 065
  9. ESOMEPRAZOLE [Concomitant]
     Active Substance: ESOMEPRAZOLE
     Dosage: STRENGTH: 40 MG
     Route: 065
  10. FLUCONAZOLE. [Concomitant]
     Active Substance: FLUCONAZOLE
     Dosage: STRENGTH: 150 MG
     Route: 065
  11. FLUTICASONE. [Concomitant]
     Active Substance: FLUTICASONE
     Dosage: STRENGTH: SUS 50 MCG/AC
     Route: 065
  12. TRIAMCINOLONE [Concomitant]
     Active Substance: TRIAMCINOLONE
     Dosage: STRENGTH: 0.1%
     Route: 065
  13. TOPIRAMATE. [Concomitant]
     Active Substance: TOPIRAMATE
     Dosage: STRENGTH: 100 MG
     Route: 065
  14. NYSTATIN. [Concomitant]
     Active Substance: NYSTATIN
     Dosage: STRENGTH: 100000 UNIT/M
     Route: 065
  15. ROPINIROLE. [Concomitant]
     Active Substance: ROPINIROLE
     Dosage: STRENGTH: 2 MG
     Route: 065
  16. MELOXICAM. [Concomitant]
     Active Substance: MELOXICAM
     Dosage: STRENGTH: 7.5 MG
     Route: 065
  17. PREDNISONE. [Concomitant]
     Active Substance: PREDNISONE
     Dosage: STRENGTH: 10MG
     Route: 065
  18. DUPIXENT [Suspect]
     Active Substance: DUPILUMAB
     Indication: PRODUCT USED FOR UNKNOWN INDICATION
     Route: 058
  19. CARBIDOPA. [Concomitant]
     Active Substance: CARBIDOPA
     Dosage: STRENGTH/FORM: TBC 50-200 MG
     Route: 065
  20. DOXYCYCLINE. [Concomitant]
     Active Substance: DOXYCYCLINE
     Dosage: STRENGTH: 100 MG
     Route: 065
  21. DULOXETINE. [Concomitant]
     Active Substance: DULOXETINE
     Dosage: FORM/STRENGTH: CPE 60 MG
     Route: 065

REACTIONS (1)
  - Candida infection [Not Recovered/Not Resolved]
